FAERS Safety Report 9006500 (Version 1)
Quarter: 2012Q4

REPORT INFORMATION
  Report Type: Spontaneous
  Country: BR (occurrence: None)
  Receive Date: 20121227
  Receipt Date: 20121227
  Transmission Date: 20130627
  Serious: Yes (Hospitalization)
  Sender: FDA-Public Use
  Company Number: DSU-2012-10023

PATIENT
  Age: 65 Year
  Sex: Female
  Weight: 54 kg

DRUGS (3)
  1. OLMETEC HCT (HYDROCHLOROTHIAZIDE, OLMESARTAN MEDOXOMIL) (TABLET) (HYDROCHLOROTHIAZIDE, OLMESARTAN MEDOXOMIL) [Suspect]
     Indication: HYPERTENSION
     Route: 048
     Dates: start: 2008
  2. LIPITOR [Suspect]
     Indication: HIGH CHOLESTEROL
     Route: 048
     Dates: start: 2011
  3. LIPITOR [Suspect]
     Indication: HIGH CHOLESTEROL
     Route: 048
     Dates: start: 2012

REACTIONS (7)
  - Labyrinthitis [None]
  - Stress [None]
  - Tendon operation [None]
  - Blood cholesterol increased [None]
  - Therapy cessation [None]
  - Economic problem [None]
  - Muscle spasms [None]
